FAERS Safety Report 12381355 (Version 3)
Quarter: 2016Q3

REPORT INFORMATION
  Report Type: Report from Study
  Country: US (occurrence: US)
  Receive Date: 20160518
  Receipt Date: 20160817
  Transmission Date: 20161109
  Serious: Yes (Other)
  Sender: FDA-Public Use
  Company Number: US-AMGEN-USASL2016060968

PATIENT
  Age: 53 Year
  Sex: Female

DRUGS (3)
  1. CALCIUM [Concomitant]
     Active Substance: CALCIUM
     Dosage: UNK
     Route: 065
  2. PROLIA [Suspect]
     Active Substance: DENOSUMAB
     Indication: OSTEOPOROSIS
     Dosage: UNK
     Route: 065
     Dates: start: 2014
  3. VITAMIN D [Concomitant]
     Active Substance: CHOLECALCIFEROL
     Dosage: UNK
     Route: 065

REACTIONS (12)
  - Menstrual disorder [Unknown]
  - Uterine leiomyoma [Unknown]
  - Pain in extremity [Unknown]
  - Weight decreased [Unknown]
  - Ligament sprain [Unknown]
  - Arthralgia [Recovered/Resolved]
  - Diabetes mellitus [Unknown]
  - Shoulder operation [Unknown]
  - Blood cholesterol increased [Unknown]
  - Pain [Unknown]
  - Skin exfoliation [Unknown]
  - Therapy non-responder [Unknown]

NARRATIVE: CASE EVENT DATE: 201503
